FAERS Safety Report 22299760 (Version 1)
Quarter: 2023Q2

REPORT INFORMATION
  Report Type: Spontaneous
  Country: DK (occurrence: DK)
  Receive Date: 20230509
  Receipt Date: 20230509
  Transmission Date: 20230721
  Serious: Yes (Other)
  Sender: FDA-Public Use
  Company Number: DK-ORESUND-22OPAZA2077P-FU2

PATIENT
  Age: 68 Year
  Sex: Male

DRUGS (6)
  1. ZOLEDRONIC ACID [Suspect]
     Active Substance: ZOLEDRONIC ACID
     Indication: Bone density decreased
     Dosage: 5 MG, UNKNOWN (APPROXIMATELY 6 MONTHS AFTER THE LAST DMAB INJECTION)
     Route: 065
  2. ZOLEDRONIC ACID [Suspect]
     Active Substance: ZOLEDRONIC ACID
     Indication: Osteoporosis
  3. DENOSUMAB [Suspect]
     Active Substance: DENOSUMAB
     Indication: Prophylaxis
     Dosage: UNK
     Route: 065
  4. DENOSUMAB [Suspect]
     Active Substance: DENOSUMAB
     Indication: Fracture
     Dosage: 60 MG, UNKNOWN, 6 MONTH (FOR 3 YEARS)
     Route: 065
  5. DENOSUMAB [Suspect]
     Active Substance: DENOSUMAB
     Indication: Osteoporosis
  6. FINASTERIDE [Suspect]
     Active Substance: FINASTERIDE
     Indication: Androgen therapy
     Dosage: UNK
     Route: 065

REACTIONS (6)
  - Rebound effect [Unknown]
  - Osteoporosis [Unknown]
  - Drug ineffective [Unknown]
  - Bone density decreased [Unknown]
  - Bone loss [Unknown]
  - Off label use [Unknown]
